FAERS Safety Report 18165171 (Version 2)
Quarter: 2021Q3

REPORT INFORMATION
  Report Type: Spontaneous
  Country: US (occurrence: US)
  Receive Date: 20200819
  Receipt Date: 20210814
  Transmission Date: 20211014
  Serious: Yes (Other)
  Sender: FDA-Public Use
  Company Number: US-UCBSA-2020031884

PATIENT
  Sex: Female

DRUGS (2)
  1. VITAMIN B12 [Concomitant]
     Active Substance: CYANOCOBALAMIN
     Indication: PRODUCT USED FOR UNKNOWN INDICATION
  2. CIMZIA [Suspect]
     Active Substance: CERTOLIZUMAB PEGOL
     Indication: CROHN^S DISEASE
     Dosage: 200 MILLIGRAM, EV 2 WEEKS(QOW)
     Route: 058
     Dates: start: 20190913

REACTIONS (8)
  - Weight increased [Unknown]
  - Diarrhoea [Unknown]
  - Peripheral swelling [Unknown]
  - Nausea [Unknown]
  - Increased tendency to bruise [Unknown]
  - Mental status changes [Unknown]
  - Headache [Unknown]
  - Product use issue [Unknown]
